FAERS Safety Report 4728773-9 (Version None)
Quarter: 2005Q3

REPORT INFORMATION
  Report Type: 
  Country: None (occurrence: None)
  Receive Date: 20050729
  Receipt Date: 20050608
  Transmission Date: 20060218
  Serious: Yes (Death, Life-Threatening, Hospitalization)
  Sender: FDA-Public Use
  Company Number: DE-GLAXOSMITHKLINE-D0046770A

PATIENT
  Age: 68 Year
  Sex: Male
  Weight: 85 kg

DRUGS (8)
  1. VIANI [Suspect]
     Dosage: 300UG SINGLE DOSE
     Route: 055
     Dates: start: 20050530, end: 20050530
  2. BEROTEC [Concomitant]
     Indication: ASTHMA
     Route: 055
  3. OMNIC [Concomitant]
     Indication: BENIGN PROSTATIC HYPERPLASIA
     Dosage: .4MG PER DAY
     Route: 048
     Dates: start: 20030101
  4. DICLO [Concomitant]
     Indication: PAIN
     Route: 048
     Dates: start: 20000101
  5. AZATHIOPRINE [Concomitant]
     Route: 065
  6. PREDNISOLONE [Concomitant]
     Route: 065
  7. TACROLIMUS [Concomitant]
     Route: 065
  8. CYCLOSPORINE [Concomitant]
     Route: 065

REACTIONS (7)
  - ANAPHYLACTIC REACTION [None]
  - BRONCHOSPASM [None]
  - CARDIAC ARREST [None]
  - DRUG HYPERSENSITIVITY [None]
  - DYSPNOEA [None]
  - HYPOXIC ENCEPHALOPATHY [None]
  - RESPIRATORY FAILURE [None]
